FAERS Safety Report 6390230-4 (Version None)
Quarter: 2009Q4

REPORT INFORMATION
  Report Type: 
  Country: None (occurrence: None)
  Receive Date: 20091006
  Receipt Date: 20090930
  Transmission Date: 20100525
  Serious: Yes (Death)
  Sender: FDA-Public Use
  Company Number: A0810435A

PATIENT
  Sex: Male

DRUGS (2)
  1. SERETIDE [Suspect]
     Indication: CHRONIC OBSTRUCTIVE PULMONARY DISEASE
     Dosage: 1PUFF TWICE PER DAY
     Route: 055
     Dates: start: 20090401, end: 20090904
  2. CONCURRENT MEDICATIONS [Concomitant]

REACTIONS (1)
  - RESPIRATORY FAILURE [None]
